FAERS Safety Report 5385549-X (Version None)
Quarter: 2007Q3

REPORT INFORMATION
  Report Type: 
  Country: None (occurrence: None)
  Receive Date: 20070712
  Receipt Date: 20070706
  Transmission Date: 20080115
  Serious: Yes (Other)
  Sender: FDA-Public Use
  Company Number: B0476507A

PATIENT
  Sex: Female
  Weight: 2.3 kg

DRUGS (3)
  1. PAXIL [Suspect]
     Indication: DRUG USE FOR UNKNOWN INDICATION
     Dosage: 20MG PER DAY
     Dates: start: 20070606, end: 20070619
  2. LORAZEPAM [Suspect]
     Indication: DRUG USE FOR UNKNOWN INDICATION
     Dosage: .25MG PER DAY
     Dates: start: 20070612, end: 20070619
  3. BUPIVACAINE HYDROCHLORIDE [Suspect]
     Indication: DRUG USE FOR UNKNOWN INDICATION

REACTIONS (8)
  - APNOEA [None]
  - BRAIN STEM ISCHAEMIA [None]
  - DRUG EXPOSURE DURING PREGNANCY [None]
  - HYPOXIA [None]
  - MUSCLE TIGHTNESS [None]
  - MYDRIASIS [None]
  - NEONATAL ASPHYXIA [None]
  - UNRESPONSIVE TO STIMULI [None]
